FAERS Safety Report 8775148 (Version 3)
Quarter: 2019Q4

REPORT INFORMATION
  Report Type: Report from Study
  Country: US (occurrence: US)
  Receive Date: 20120910
  Receipt Date: 20191024
  Transmission Date: 20200122
  Serious: Yes (Life-Threatening, Hospitalization, Other)
  Sender: FDA-Public Use
  Company Number: US-ACTELION-A-NJ2012-70896

PATIENT
  Age: 55 Year
  Sex: Male

DRUGS (3)
  1. SILDENAFIL. [Concomitant]
     Active Substance: SILDENAFIL
  2. TRACLEER [Suspect]
     Active Substance: BOSENTAN
     Indication: PULMONARY ARTERIAL HYPERTENSION
     Dosage: 125 MG, BID
     Route: 048
     Dates: start: 20120810, end: 20120824
  3. LASIX [Concomitant]
     Active Substance: FUROSEMIDE

REACTIONS (9)
  - Mobility decreased [Recovered/Resolved]
  - Cardiac failure congestive [Unknown]
  - Fluid retention [Recovered/Resolved]
  - Pulmonary oedema [Recovered/Resolved]
  - Upper respiratory tract infection [Recovered/Resolved]
  - Weight increased [Recovered/Resolved]
  - Dyspnoea [Recovered/Resolved]
  - Cognitive disorder [Recovered/Resolved]
  - Respiratory distress [Recovered/Resolved]

NARRATIVE: CASE EVENT DATE: 20120824
